FAERS Safety Report 7215813-0 (Version None)
Quarter: 2011Q1

REPORT INFORMATION
  Report Type: 
  Country: None (occurrence: None)
  Receive Date: 20110107
  Receipt Date: 20101230
  Transmission Date: 20110831
  Serious: Yes (Hospitalization, Other)
  Sender: FDA-Public Use
  Company Number: US-PFIZER INC-2006012132

PATIENT
  Sex: Female
  Weight: 47.619 kg

DRUGS (8)
  1. NEURONTIN [Suspect]
     Indication: PARAESTHESIA
  2. WARFARIN [Concomitant]
     Route: 048
  3. LYRICA [Suspect]
     Indication: NEUROPATHY PERIPHERAL
     Dosage: 75 MG, 2X/DAY
     Route: 048
     Dates: start: 20051220
  4. CELEBREX [Concomitant]
     Route: 048
  5. AMBIEN [Concomitant]
     Route: 048
  6. NEURONTIN [Suspect]
     Indication: NEUROPATHY PERIPHERAL
     Dosage: UNK
     Route: 048
     Dates: end: 19930101
  7. ASPIRIN [Concomitant]
     Route: 048
  8. COREG [Concomitant]
     Route: 048

REACTIONS (12)
  - COLLAPSE OF LUNG [None]
  - CLAVICLE FRACTURE [None]
  - RIB FRACTURE [None]
  - DRUG INEFFECTIVE [None]
  - SOMNOLENCE [None]
  - LOWER LIMB FRACTURE [None]
  - VASCULAR STENOSIS [None]
  - ACCIDENT [None]
  - EAR HAEMORRHAGE [None]
  - NEUROPATHY PERIPHERAL [None]
  - INTERVERTEBRAL DISC DISORDER [None]
  - ABDOMINAL DISCOMFORT [None]
